FAERS Safety Report 9518963 (Version 1)
Quarter: 2013Q3

REPORT INFORMATION
  Report Type: Spontaneous
  Country: US (occurrence: None)
  Receive Date: 20130910
  Receipt Date: 20130910
  Transmission Date: 20140515
  Serious: Yes (Other)
  Sender: FDA-Public Use
  Company Number: None

PATIENT
  Age: 66 Year
  Sex: Female

DRUGS (7)
  1. CEPHALEXIN [Suspect]
     Indication: CELLULITIS
     Route: 048
     Dates: start: 20130819, end: 20130903
  2. TARKA [Suspect]
     Indication: BLOOD PRESSURE INCREASED
     Route: 048
     Dates: start: 20130329, end: 20130909
  3. LATANOPROST [Concomitant]
  4. PANTOPRAZOLE [Concomitant]
  5. DEPAKOTE [Concomitant]
  6. MONTELUKAST [Concomitant]
  7. AZELAST [Concomitant]

REACTIONS (3)
  - Lethargy [None]
  - Blood pressure inadequately controlled [None]
  - Feeling abnormal [None]
